FAERS Safety Report 23153802 (Version 4)
Quarter: 2024Q1

REPORT INFORMATION
  Report Type: Report from Study
  Country: US (occurrence: US)
  Receive Date: 20231107
  Receipt Date: 20240310
  Transmission Date: 20240409
  Serious: Yes (Hospitalization, Other)
  Sender: FDA-Public Use
  Company Number: US-ABBVIE-5483657

PATIENT
  Age: 69 Year
  Sex: Female

DRUGS (2)
  1. HUMIRA [Suspect]
     Active Substance: ADALIMUMAB
     Indication: Crohn^s disease
     Dosage: FORM STRENGTH: 40 MILLIGRAM, CITRATE FREE
     Route: 058
     Dates: start: 20221026
  2. HUMIRA [Suspect]
     Active Substance: ADALIMUMAB
     Dosage: FORM STRENGTH: 40 MILLIGRAM, CITRATE FREE
     Route: 058
     Dates: start: 20221209

REACTIONS (6)
  - Chronic obstructive pulmonary disease [Unknown]
  - Cataract [Unknown]
  - Constipation [Unknown]
  - Vomiting [Unknown]
  - Adverse food reaction [Unknown]
  - Abdominal pain [Unknown]

NARRATIVE: CASE EVENT DATE: 20230401
